FAERS Safety Report 22351808 (Version 1)
Quarter: 2023Q2

REPORT INFORMATION
  Report Type: Spontaneous
  Country: US (occurrence: US)
  Receive Date: 20230522
  Receipt Date: 20230522
  Transmission Date: 20230722
  Serious: Yes (Other)
  Sender: FDA-Public Use
  Company Number: US-002147023-NVSC2023US113805

PATIENT
  Sex: Female

DRUGS (6)
  1. CARBAMAZEPINE [Suspect]
     Active Substance: CARBAMAZEPINE
     Indication: Generalised tonic-clonic seizure
     Dosage: UNK
     Route: 065
  2. CARBAMAZEPINE [Suspect]
     Active Substance: CARBAMAZEPINE
     Indication: Tonic convulsion
  3. LAMOTRIGINE [Suspect]
     Active Substance: LAMOTRIGINE
     Indication: Generalised tonic-clonic seizure
     Dosage: UNK
     Route: 065
  4. LAMOTRIGINE [Suspect]
     Active Substance: LAMOTRIGINE
     Indication: Tonic convulsion
  5. PHENYTOIN [Suspect]
     Active Substance: PHENYTOIN
     Indication: Generalised tonic-clonic seizure
     Dosage: UNK
     Route: 065
  6. PHENYTOIN [Suspect]
     Active Substance: PHENYTOIN
     Indication: Tonic convulsion

REACTIONS (3)
  - Generalised tonic-clonic seizure [Unknown]
  - Tonic convulsion [Unknown]
  - Condition aggravated [Unknown]
